FAERS Safety Report 6437030-4 (Version None)
Quarter: 2009Q4

REPORT INFORMATION
  Report Type: 
  Country: None (occurrence: None)
  Receive Date: 20091112
  Receipt Date: 20091106
  Transmission Date: 20100525
  Serious: Yes (Death)
  Sender: FDA-Public Use
  Company Number: JP-JNJFOC-20090905719

PATIENT
  Sex: Male

DRUGS (46)
  1. S-4661 [Suspect]
     Indication: PERITONITIS
     Route: 041
     Dates: start: 20090902, end: 20090910
  2. NEOPAREN [Concomitant]
     Indication: FLUID REPLACEMENT
     Route: 042
  3. VOLVIX [Concomitant]
     Indication: TRACE ELEMENT DEFICIENCY
     Route: 042
  4. GASTER [Concomitant]
     Indication: GASTRITIS PROPHYLAXIS
     Route: 042
  5. BISOLVON [Concomitant]
     Indication: SPUTUM RETENTION
     Route: 042
  6. SOLDEM 3A [Concomitant]
     Route: 042
  7. SOLDEM 3A [Concomitant]
     Indication: FLUID REPLACEMENT
     Route: 042
  8. PREDOPA [Concomitant]
     Indication: PERITONITIS
     Route: 042
  9. PRECEDEX [Concomitant]
     Route: 042
  10. PRECEDEX [Concomitant]
     Indication: SEDATION
     Route: 042
  11. CALCIUM CHLORIDE DIHYDRATE [Concomitant]
     Indication: MINERAL SUPPLEMENTATION
     Route: 042
  12. LANSOPRAZOLE [Concomitant]
     Route: 042
  13. LANSOPRAZOLE [Concomitant]
     Indication: GASTRITIS PROPHYLAXIS
     Route: 042
  14. PROPOFOL [Concomitant]
     Route: 042
  15. PROPOFOL [Concomitant]
     Indication: SEDATION
     Route: 042
  16. ALBUMIN (HUMAN) [Concomitant]
     Route: 042
  17. ALBUMIN (HUMAN) [Concomitant]
     Route: 042
  18. ALBUMIN (HUMAN) [Concomitant]
     Indication: PERITONITIS
     Route: 042
  19. NEUART [Concomitant]
     Route: 042
  20. NEUART [Concomitant]
     Indication: PERITONITIS
     Route: 042
  21. HUMULIN R [Concomitant]
     Route: 042
  22. HUMULIN R [Concomitant]
     Route: 042
  23. HUMULIN R [Concomitant]
     Route: 042
  24. HUMULIN R [Concomitant]
     Route: 042
  25. HUMULIN R [Concomitant]
     Route: 042
  26. AMINO ACID INJ [Concomitant]
     Route: 042
  27. AMINO ACID INJ [Concomitant]
     Route: 042
  28. AMINO ACID INJ [Concomitant]
     Indication: FLUID REPLACEMENT
     Route: 042
  29. MEYLON [Concomitant]
     Indication: PERITONITIS
     Route: 042
  30. VITAJECT [Concomitant]
     Route: 042
  31. VITAJECT [Concomitant]
     Indication: VITAMIN SUPPLEMENTATION
     Route: 042
  32. TANDETRON [Concomitant]
     Indication: PERITONITIS
     Route: 042
  33. SOLITA-T NO.4 [Concomitant]
     Indication: FLUID REPLACEMENT
     Route: 042
  34. HICALIQ [Concomitant]
     Indication: FLUID REPLACEMENT
     Route: 042
  35. KIDMIN [Concomitant]
     Indication: FLUID REPLACEMENT
     Route: 042
  36. LASIX [Concomitant]
     Route: 042
  37. LASIX [Concomitant]
     Indication: POLYURIA
     Route: 042
  38. HANP [Concomitant]
     Indication: POLYURIA
     Route: 042
  39. PANTOL (PANTHENOL) [Concomitant]
     Route: 042
  40. PANTOL (PANTHENOL) [Concomitant]
     Indication: GASTROINTESTINAL HYPERMOTILITY
     Route: 042
  41. POTASSIUM CHLORIDE [Concomitant]
     Route: 042
  42. POTASSIUM CHLORIDE [Concomitant]
     Indication: BLOOD POTASSIUM NORMAL
     Route: 042
  43. SOLU-CORTEF [Concomitant]
     Indication: PROPHYLAXIS
     Route: 042
  44. ACETATED RINGER [Concomitant]
     Indication: FLUID REPLACEMENT
     Route: 042
  45. GLUCOSE [Concomitant]
     Indication: HYPOGLYCAEMIA
     Route: 042
  46. ROPION [Concomitant]
     Indication: WOUND COMPLICATION
     Route: 042

REACTIONS (1)
  - SEPSIS [None]
